FAERS Safety Report 6372098-5 (Version None)
Quarter: 2009Q3

REPORT INFORMATION
  Report Type: 
  Country: None (occurrence: None)
  Receive Date: 20090917
  Receipt Date: 20090904
  Transmission Date: 20100115
  Serious: Yes (Other)
  Sender: FDA-Public Use
  Company Number: ADR18972009

PATIENT
  Age: 45 Year
  Sex: Female

DRUGS (6)
  1. SALBUTAMOL (MFR: UNKNOWN) [Suspect]
     Indication: ASTHMA
     Dosage: INTRAVENOUS AND  INHALATION
     Route: 042
  2. AMINOPHYLLINE [Concomitant]
  3. HYDROCORTISONE [Concomitant]
  4. INTRAVENOUS FLUIDS [Concomitant]
  5. OXYGEN [Concomitant]
  6. PREDNISOLONE [Concomitant]

REACTIONS (3)
  - BLOOD PH DECREASED [None]
  - HYPERGLYCAEMIA [None]
  - KETOACIDOSIS [None]
